FAERS Safety Report 4447697-8 (Version None)
Quarter: 2004Q3

REPORT INFORMATION
  Report Type: 
  Country: None (occurrence: None)
  Receive Date: 20040802
  Receipt Date: 20040420
  Transmission Date: 20050211
  Serious: No
  Sender: FDA-Public Use
  Company Number: 2004-115288-NL

PATIENT
  Age: 38 Year
  Sex: Female
  Weight: 68 kg

DRUGS (4)
  1. NUVARING [Suspect]
     Indication: CONTRACEPTION
     Dosage: DF  DAILY  VAGINAL
     Route: 067
     Dates: start: 20040128
  2. MULTI-VITAMINS [Concomitant]
  3. CALCIUM SUPPLEMENT [Concomitant]
  4. VITAMIN B SUPPLEMENT [Concomitant]

REACTIONS (1)
  - VULVOVAGINAL DRYNESS [None]
